FAERS Safety Report 25541287 (Version 1)
Quarter: 2025Q3

REPORT INFORMATION
  Report Type: Spontaneous
  Country: GB (occurrence: GB)
  Receive Date: 20250711
  Receipt Date: 20250711
  Transmission Date: 20251021
  Serious: Yes (Hospitalization, Other)
  Sender: TEVA
  Company Number: GB-PHARMVIT-4556-3352-ER25-RN1508

PATIENT
  Age: 37 Year
  Sex: Female

DRUGS (1)
  1. PREDNISOLONE [Suspect]
     Active Substance: PREDNISOLONE
     Indication: Systemic lupus erythematosus
     Route: 065

REACTIONS (4)
  - Immunosuppression [Recovered/Resolved]
  - Haemophagocytic lymphohistiocytosis [Recovered/Resolved]
  - Streptococcus test positive [Recovered/Resolved]
  - Pneumococcal bacteraemia [Recovered/Resolved]
